FAERS Safety Report 14448952 (Version 2)
Quarter: 2018Q1

REPORT INFORMATION
  Report Type: Spontaneous
  Country: FR (occurrence: FR)
  Receive Date: 20180126
  Receipt Date: 20180209
  Transmission Date: 20180509
  Serious: Yes (Other)
  Sender: FDA-Public Use
  Company Number: FR-MYLANLABS-2018M1004979

PATIENT
  Age: 18 Year
  Sex: Male

DRUGS (2)
  1. MINOCYCLINE [Suspect]
     Active Substance: MINOCYCLINE\MINOCYCLINE HYDROCHLORIDE
     Indication: ACNE
     Dosage: 50 MG, QD
  2. ASPIRIN                            /00002701/ [Concomitant]
     Active Substance: ASPIRIN
     Indication: LATERAL MEDULLARY SYNDROME
     Dosage: UNK

REACTIONS (13)
  - Vertigo [Recovered/Resolved]
  - Cerebrovascular accident [Recovered/Resolved]
  - Lateral medullary syndrome [Recovered/Resolved]
  - Diplopia [Recovered/Resolved]
  - Beta-2 glycoprotein antibody positive [Recovered/Resolved]
  - Hypoaesthesia [Recovered/Resolved]
  - Headache [Recovered/Resolved]
  - Antiphospholipid syndrome [Recovered/Resolved]
  - Infarction [Recovered/Resolved]
  - Dysphagia [Recovered/Resolved]
  - Antiphospholipid antibodies positive [Recovered/Resolved]
  - IIIrd nerve disorder [Recovered/Resolved]
  - Horner^s syndrome [Recovered/Resolved]
